FAERS Safety Report 13837801 (Version 1)
Quarter: 2017Q3

REPORT INFORMATION
  Report Type: Report from Study
  Country: US (occurrence: US)
  Receive Date: 20170806
  Receipt Date: 20170806
  Transmission Date: 20171127
  Serious: Yes (Other)
  Sender: FDA-Public Use
  Company Number: US-BEH-2017082628

PATIENT
  Age: 34 Year
  Sex: Female

DRUGS (7)
  1. ALBUMINAR-5 [Suspect]
     Active Substance: ALBUMIN HUMAN
     Indication: CYTOMEGALOVIRUS INFECTION
     Dosage: 184.4 ML, QMT
     Route: 042
     Dates: start: 20170215
  2. BLINDED ALBUMIN 5% [Suspect]
     Active Substance: ALBUMIN HUMAN
     Dosage: 184.4 ML, QMT
     Route: 042
     Dates: start: 20170606
  3. CYTOGAM [Suspect]
     Active Substance: HUMAN CYTOMEGALOVIRUS IMMUNE GLOBULIN
     Dosage: 184.4 ML, QMT
     Route: 042
     Dates: start: 20170606
  4. LABETALOL [Concomitant]
     Active Substance: LABETALOL\LABETALOL HYDROCHLORIDE
     Indication: HYPERTENSION
  5. BLINDED ALBUMIN 5% [Suspect]
     Active Substance: ALBUMIN HUMAN
     Indication: CYTOMEGALOVIRUS INFECTION
     Dosage: 184.4 ML, QMT
     Route: 042
     Dates: start: 20170215
  6. ALBUMINAR-5 [Suspect]
     Active Substance: ALBUMIN HUMAN
     Dosage: 184.4 ML, QMT
     Route: 042
     Dates: start: 20170606
  7. CYTOGAM [Suspect]
     Active Substance: HUMAN CYTOMEGALOVIRUS IMMUNE GLOBULIN
     Indication: CYTOMEGALOVIRUS INFECTION
     Dosage: 184.4 ML, QMT
     Route: 042
     Dates: start: 20170215

REACTIONS (2)
  - Gestational hypertension [Unknown]
  - Premature delivery [Unknown]

NARRATIVE: CASE EVENT DATE: 20170705
